FAERS Safety Report 7129681-9 (Version None)
Quarter: 2010Q4

REPORT INFORMATION
  Report Type: 
  Country: None (occurrence: None)
  Receive Date: 20101130
  Receipt Date: 20101125
  Transmission Date: 20110411
  Serious: Yes (Hospitalization)
  Sender: FDA-Public Use
  Company Number: CA-PFIZER INC-2010100881

PATIENT
  Age: 60 Year
  Sex: Male
  Weight: 54 kg

DRUGS (5)
  1. CAMPTOSAR [Suspect]
     Indication: PANCREATIC CARCINOMA
     Dosage: 280 MG, 90 MINUTE INFUSION
     Route: 042
     Dates: start: 20100803, end: 20100803
  2. OXALIPLATIN [Concomitant]
     Indication: PANCREATIC CARCINOMA
     Dosage: 135 MG, CYCLIC (2 HR INFUSION)
     Route: 042
     Dates: start: 20100803, end: 20100803
  3. FLUOROURACIL [Concomitant]
     Indication: PANCREATIC CARCINOMA
     Dosage: 625 MG, BOLUS OVER 5 MIN
     Route: 040
     Dates: start: 20100803, end: 20100803
  4. FLUOROURACIL [Concomitant]
     Dosage: 3775 MG, INFUSION OVER 46 HRS
     Route: 042
     Dates: start: 20100803, end: 20100803
  5. LEUCOVORIN [Concomitant]
     Indication: PANCREATIC CARCINOMA
     Dosage: 630 MG, CYCLIC (INFUSION OVER 2 HRS)
     Route: 042
     Dates: start: 20100803, end: 20100803

REACTIONS (3)
  - PROCEDURAL PAIN [None]
  - TUMOUR PERFORATION [None]
  - WEIGHT DECREASED [None]
